FAERS Safety Report 17483706 (Version 1)
Quarter: 2020Q1

REPORT INFORMATION
  Report Type: Spontaneous
  Country: US (occurrence: US)
  Receive Date: 20200301
  Receipt Date: 20200301
  Transmission Date: 20200409
  Serious: No
  Sender: FDA-Public Use
  Company Number: None

PATIENT
  Age: 61 Year
  Sex: Female
  Weight: 83.25 kg

DRUGS (1)
  1. NP THYROID [Suspect]
     Active Substance: LEVOTHYROXINE\LIOTHYRONINE
     Indication: HYPOTHYROIDISM
     Dosage: ?          QUANTITY:116 TABLET(S);OTHER FREQUENCY:1 M-F  2 SA/SU;?
     Route: 048

REACTIONS (5)
  - Abdominal distension [None]
  - Product odour abnormal [None]
  - Product complaint [None]
  - Gastrointestinal disorder [None]
  - Product taste abnormal [None]

NARRATIVE: CASE EVENT DATE: 20200115
